FAERS Safety Report 6534291-8 (Version None)
Quarter: 2010Q1

REPORT INFORMATION
  Report Type: 
  Country: None (occurrence: None)
  Receive Date: 20100112
  Receipt Date: 20100106
  Transmission Date: 20100710
  Serious: Yes (Hospitalization)
  Sender: FDA-Public Use
  Company Number: US-ROCHE-678038

PATIENT
  Age: 45 Year
  Sex: Female
  Weight: 54.5 kg

DRUGS (2)
  1. TAMIFLU [Suspect]
     Route: 048
     Dates: start: 20091211, end: 20091216
  2. SYNTHROID [Concomitant]

REACTIONS (4)
  - DISORIENTATION [None]
  - PARANOIA [None]
  - PSYCHOTIC BEHAVIOUR [None]
  - SOCIAL AVOIDANT BEHAVIOUR [None]
